FAERS Safety Report 24816951 (Version 1)
Quarter: 2025Q1

REPORT INFORMATION
  Report Type: Spontaneous
  Country: US (occurrence: US)
  Receive Date: 20250108
  Receipt Date: 20250108
  Transmission Date: 20250409
  Serious: Yes (Hospitalization, Other)
  Sender: NOVO NORDISK
  Company Number: US-NOVOPROD-1344955

PATIENT
  Age: 74 Year
  Sex: Female

DRUGS (1)
  1. WEGOVY [Suspect]
     Active Substance: SEMAGLUTIDE
     Indication: Obesity
     Route: 058

REACTIONS (12)
  - Wernicke^s encephalopathy [Unknown]
  - Nausea [Unknown]
  - Vomiting [Unknown]
  - Abdominal pain [Unknown]
  - Dizziness [Unknown]
  - Asthenia [Unknown]
  - Bowel movement irregularity [Unknown]
  - Weight decreased [Unknown]
  - COVID-19 [Unknown]
  - Nystagmus [Unknown]
  - Areflexia [Unknown]
  - Hospice care [Unknown]
